FAERS Safety Report 23935568 (Version 2)
Quarter: 2024Q3

REPORT INFORMATION
  Report Type: Spontaneous
  Country: US (occurrence: US)
  Receive Date: 20240604
  Receipt Date: 20240805
  Transmission Date: 20241016
  Serious: No
  Sender: LUPIN
  Company Number: US-LUPIN PHARMACEUTICALS INC.-2024-04451

PATIENT

DRUGS (2)
  1. ALBUTEROL SULFATE [Suspect]
     Active Substance: ALBUTEROL SULFATE
     Indication: Dyspnoea
     Dosage: UNK, 1 PUFF EVERY 6 HRS
     Dates: start: 202403
  2. ALBUTEROL SULFATE [Suspect]
     Active Substance: ALBUTEROL SULFATE
     Dosage: UNK, 1 PUFF EVERY 6 HRS
     Dates: start: 202403

REACTIONS (4)
  - Wrong technique in product usage process [Unknown]
  - Drug dose omission by device [Unknown]
  - Product storage error [Unknown]
  - No adverse event [Unknown]
